FAERS Safety Report 21996028 (Version 1)
Quarter: 2023Q1

REPORT INFORMATION
  Report Type: Spontaneous
  Country: CA (occurrence: CA)
  Receive Date: 20230215
  Receipt Date: 20230215
  Transmission Date: 20230417
  Serious: Yes (Other)
  Sender: FDA-Public Use
  Company Number: CA-BAXTER-2023BAX012616

PATIENT
  Age: 63 Year
  Sex: Male

DRUGS (6)
  1. CEFTRIAXONE [Suspect]
     Active Substance: CEFTRIAXONE
     Indication: COVID-19
     Route: 065
  2. METHYLPREDNISOLONE [Suspect]
     Active Substance: METHYLPREDNISOLONE
     Indication: COVID-19
     Dosage: 240 MILLIGRAM, ONCE EVERY DAY
     Route: 042
  3. METHYLPREDNISOLONE [Suspect]
     Active Substance: METHYLPREDNISOLONE
     Dosage: 80 MILLIGRAM, ONCE EVERY DAY
     Route: 042
  4. PREDNISONE [Suspect]
     Active Substance: PREDNISONE
     Indication: COVID-19
     Dosage: 50 MILLIGRAM, ONCE EVERY DAY (DOSAGE FORM - NOT SPECIFIED)
     Route: 048
  5. TOCILIZUMAB [Suspect]
     Active Substance: TOCILIZUMAB
     Indication: COVID-19
     Route: 065
  6. FLUCONAZOLE [Concomitant]
     Active Substance: FLUCONAZOLE
     Indication: Fungal oesophagitis
     Dosage: 600 MILLIGRAM. ONCE EVERY DAY (DOSAGE FORM - NOT SPECIFIED)
     Route: 065

REACTIONS (3)
  - Endophthalmitis [Recovered/Resolved]
  - Fungaemia [Recovered/Resolved]
  - Product use in unapproved indication [Recovered/Resolved]
